FAERS Safety Report 6889618-4 (Version None)
Quarter: 2010Q3

REPORT INFORMATION
  Report Type: 
  Country: None (occurrence: None)
  Receive Date: 20100730
  Receipt Date: 20080402
  Transmission Date: 20110219
  Serious: No
  Sender: FDA-Public Use
  Company Number: US-PFIZER INC-2008029496

PATIENT
  Sex: Male
  Weight: 103.63 kg

DRUGS (3)
  1. LIPITOR [Suspect]
     Indication: BLOOD CHOLESTEROL INCREASED
     Dates: start: 20030101
  2. HYDROCHLOROTHIAZIDE [Concomitant]
  3. ENALAPRIL [Concomitant]

REACTIONS (2)
  - AMNESIA [None]
  - WRONG TECHNIQUE IN DRUG USAGE PROCESS [None]
